FAERS Safety Report 9339238 (Version 1)
Quarter: 2013Q2

REPORT INFORMATION
  Report Type: Spontaneous
  Country: US (occurrence: US)
  Receive Date: 20130610
  Receipt Date: 20130610
  Transmission Date: 20140414
  Serious: Yes (Life-Threatening)
  Sender: FDA-Public Use
  Company Number: US-ACTELION-A-NJ2013-83445

PATIENT
  Age: 61 Year
  Sex: Female

DRUGS (1)
  1. VENTAVIS [Suspect]
     Indication: PULMONARY ARTERIAL HYPERTENSION
     Dosage: 2.5 MCG, 5 TIMES/DAY
     Route: 055
     Dates: start: 201303

REACTIONS (2)
  - Laryngitis [Recovered/Resolved]
  - Dyspnoea [Recovered/Resolved]
